FAERS Safety Report 6061237-1 (Version None)
Quarter: 2009Q1

REPORT INFORMATION
  Report Type: 
  Country: None (occurrence: None)
  Receive Date: 20090202
  Receipt Date: 20090126
  Transmission Date: 20090719
  Serious: Yes (Hospitalization, Other)
  Sender: FDA-Public Use
  Company Number: US-ASTRAZENECA-2009UW02241

PATIENT
  Age: 71 Year
  Sex: Female
  Weight: 65.3 kg

DRUGS (2)
  1. ARIMIDEX [Suspect]
     Indication: BREAST CANCER
     Route: 048
     Dates: start: 20070101
  2. MUCADEX [Concomitant]
     Indication: NASAL MUCOSAL DISORDER

REACTIONS (3)
  - FRACTURE [None]
  - HERPES ZOSTER [None]
  - NERVE INJURY [None]
